FAERS Safety Report 8081445-8 (Version None)
Quarter: 2012Q1

REPORT INFORMATION
  Report Type: 
  Country: None (occurrence: None)
  Receive Date: 20120130
  Receipt Date: 20120125
  Transmission Date: 20120608
  Serious: Yes (Hospitalization, Other)
  Sender: FDA-Public Use
  Company Number: US-PFIZER INC-K200901002

PATIENT
  Age: 80 Year
  Sex: Female

DRUGS (20)
  1. AMLODIPINE [Suspect]
     Indication: HYPERTENSION
     Dosage: 5 MG, 1X/DAY
     Route: 048
     Dates: start: 20081101, end: 20090515
  2. SIMVASTATIN [Suspect]
     Indication: HYPERLIPIDAEMIA
     Dosage: 40 MG, 1X/DAY
     Route: 048
     Dates: start: 20081101, end: 20090505
  3. ACTONEL [Concomitant]
     Indication: OSTEOPOROSIS
     Dosage: UNK
     Route: 048
     Dates: start: 20040101, end: 20090505
  4. DREISAFER [Concomitant]
     Indication: IRON DEFICIENCY
     Dosage: 100 MG, UNK
     Route: 048
     Dates: start: 20081101, end: 20090504
  5. FOLIC ACID [Concomitant]
     Indication: IMMUNOSUPPRESSANT DRUG THERAPY
     Dosage: UNK, QD
     Route: 048
     Dates: start: 20081101, end: 20090504
  6. ALTACE [Suspect]
     Dosage: 1.25 MG, 1X/DAY
     Route: 048
     Dates: start: 20090513
  7. DIGITOXIN [Concomitant]
     Indication: TACHYARRHYTHMIA
     Dosage: 0.07 MG, 1X/DAY
     Route: 048
     Dates: start: 20081101
  8. PREDNISOLONE [Concomitant]
     Dosage: 50 MG, UNK
     Route: 048
     Dates: start: 20090526, end: 20090526
  9. PREDNISOLONE [Concomitant]
     Dosage: 25 MG, UNK
     Route: 048
     Dates: start: 20090527, end: 20090101
  10. PREDNISOLONE [Concomitant]
     Dosage: 100 MG, UNK
     Route: 048
     Dates: start: 20090520, end: 20090525
  11. XIPAMIDE [Concomitant]
     Indication: HYPERTENSION
     Dosage: 10 MG, UNK
     Route: 048
     Dates: start: 20081101, end: 20090503
  12. ALTACE [Suspect]
     Indication: HYPERTENSION
     Dosage: 2.5 MG, 1X/DAY
     Route: 048
     Dates: start: 20000101, end: 20090512
  13. FALITHROM [Suspect]
     Indication: TACHYARRHYTHMIA
     Dosage: 3 MG, 1X/DAY
     Route: 048
     Dates: start: 20081101, end: 20090504
  14. OMEPRAZOLE [Suspect]
     Indication: PROPHYLAXIS AGAINST GASTROINTESTINAL ULCER
     Dosage: 20 MG, 1X/DAY
     Route: 048
     Dates: start: 20081101, end: 20090503
  15. PREDNISOLONE [Concomitant]
     Dosage: 5 MG, 1X/DAY
     Route: 048
     Dates: start: 20090101
  16. CORDANUM [Suspect]
     Indication: TACHYARRHYTHMIA
     Dosage: 50 MG, 1X/DAY
     Route: 048
     Dates: end: 20090504
  17. TORSEMIDE [Suspect]
     Indication: HYPERTENSION
     Dosage: 200 MG, 1X/DAY
     Route: 048
     Dates: start: 20081101
  18. SEROQUEL [Suspect]
     Indication: RESTLESSNESS
     Dosage: 25 MG, 1X/DAY
     Route: 048
     Dates: start: 20081101
  19. PREDNISOLONE [Concomitant]
     Indication: RHEUMATOID ARTHRITIS
     Dosage: 5 MG, UNK
     Route: 048
     Dates: start: 20020101, end: 20090519
  20. METHOTREXATE [Suspect]
     Indication: RHEUMATOID ARTHRITIS
     Dosage: 10 ML, 1X/DAY
     Route: 058
     Dates: start: 20081101, end: 20090504

REACTIONS (15)
  - RESTLESSNESS [None]
  - PLEURAL EFFUSION [None]
  - GAMMA-GLUTAMYLTRANSFERASE INCREASED [None]
  - PULMONARY CONGESTION [None]
  - ASPARTATE AMINOTRANSFERASE INCREASED [None]
  - ALANINE AMINOTRANSFERASE INCREASED [None]
  - DIVERTICULITIS [None]
  - ALVEOLITIS [None]
  - GENERAL PHYSICAL HEALTH DETERIORATION [None]
  - VOMITING [None]
  - DYSPNOEA [None]
  - NAUSEA [None]
  - CEREBROVASCULAR ACCIDENT [None]
  - ABDOMINAL PAIN [None]
  - TACHYARRHYTHMIA [None]
